FAERS Safety Report 9105342 (Version 1)
Quarter: 2013Q1

REPORT INFORMATION
  Report Type: Report from Study
  Country: ES (occurrence: JP)
  Receive Date: 20130220
  Receipt Date: 20130220
  Transmission Date: 20140127
  Serious: Yes (Hospitalization)
  Sender: FDA-Public Use
  Company Number: JP-FRI-1000042770

PATIENT
  Age: 77 Year
  Sex: Male

DRUGS (8)
  1. ACLIDINIUM BROMIDE [Suspect]
     Indication: CHRONIC OBSTRUCTIVE PULMONARY DISEASE
     Dosage: 800 MCG
     Route: 055
     Dates: start: 20121119, end: 20130125
  2. THEO-DUR [Concomitant]
     Dosage: 200 MG
     Route: 048
  3. ADOAIR [Concomitant]
     Dosage: 500 MCG
     Route: 055
  4. SULTANOL [Concomitant]
     Route: 055
  5. GASLON N [Concomitant]
     Dosage: 4 MG
     Route: 048
  6. CRESTOR [Concomitant]
     Dosage: 2.5 MG
     Route: 048
  7. CERNILTON [Concomitant]
     Dosage: 4 DOSAGE FORMS
     Route: 048
  8. MYSER [Concomitant]

REACTIONS (3)
  - Pneumonia aspiration [Recovering/Resolving]
  - Brain neoplasm [Not Recovered/Not Resolved]
  - Pleural effusion [None]
